FAERS Safety Report 17916329 (Version 1)
Quarter: 2020Q2

REPORT INFORMATION
  Report Type: Spontaneous
  Country: US (occurrence: US)
  Receive Date: 20200618
  Receipt Date: 20200618
  Transmission Date: 20200714
  Serious: Yes (Other)
  Sender: FDA-Public Use
  Company Number: None

PATIENT
  Age: 80 Year
  Sex: Male
  Weight: 100 kg

DRUGS (19)
  1. ATORVASTATIN [Concomitant]
     Active Substance: ATORVASTATIN
  2. LANTUS [Concomitant]
     Active Substance: INSULIN GLARGINE
  3. REMDESIVIR INJECTION 100 MG/VIAL [Suspect]
     Active Substance: REMDESIVIR
     Indication: COVID-19
     Route: 042
     Dates: start: 20200612, end: 20200612
  4. ASCORBIC ACID. [Concomitant]
     Active Substance: ASCORBIC ACID
  5. SOLU-MEDROL [Concomitant]
     Active Substance: METHYLPREDNISOLONE SODIUM SUCCINATE
  6. OSELTAMIVIR [Concomitant]
     Active Substance: OSELTAMIVIR
  7. REMDESIVIR INJECTION 100 MG/VIAL [Suspect]
     Active Substance: REMDESIVIR
     Indication: COVID-19
     Route: 042
     Dates: start: 20200613, end: 20200617
  8. AZITHROMYCIN ANHYDROUS. [Concomitant]
     Active Substance: AZITHROMYCIN ANHYDROUS
  9. ENOXAPARIN [Concomitant]
     Active Substance: ENOXAPARIN
  10. HYDROXYCHLOROQUINE [Concomitant]
     Active Substance: HYDROXYCHLOROQUINE
  11. LATANOPROST. [Concomitant]
     Active Substance: LATANOPROST
  12. BRIMONIDINE [Concomitant]
     Active Substance: BRIMONIDINE TARTRATE
  13. ZOSYN [Concomitant]
     Active Substance: PIPERACILLIN SODIUM\TAZOBACTAM SODIUM
  14. FAMOTIDINE. [Concomitant]
     Active Substance: FAMOTIDINE
  15. ZINC SULFATE. [Concomitant]
     Active Substance: ZINC SULFATE
  16. TAMSULOSIN [Concomitant]
     Active Substance: TAMSULOSIN
  17. HUMALOG [Concomitant]
     Active Substance: INSULIN LISPRO
  18. ZIPRASIDONE. [Concomitant]
     Active Substance: ZIPRASIDONE
  19. HYDRALAZINE [Concomitant]
     Active Substance: HYDRALAZINE HYDROCHLORIDE

REACTIONS (1)
  - Acute kidney injury [None]

NARRATIVE: CASE EVENT DATE: 20200617
